FAERS Safety Report 25030551 (Version 3)
Quarter: 2025Q3

REPORT INFORMATION
  Report Type: Spontaneous
  Country: EU (occurrence: EU)
  Receive Date: 20250303
  Receipt Date: 20250826
  Transmission Date: 20251021
  Serious: Yes (Death, Life-Threatening, Hospitalization, Other)
  Sender: AUROBINDO
  Company Number: EU-MLMSERVICE-20250207-PI400367-00101-1

PATIENT
  Age: 59 Year
  Sex: Female

DRUGS (6)
  1. PEMETREXED [Suspect]
     Active Substance: PEMETREXED
     Indication: Lung adenocarcinoma stage IV
     Route: 065
     Dates: start: 202201, end: 202204
  2. CISPLATIN [Suspect]
     Active Substance: CISPLATIN
     Indication: Lung adenocarcinoma stage IV
     Route: 065
     Dates: start: 202201, end: 202204
  3. PEMBROLIZUMAB [Suspect]
     Active Substance: PEMBROLIZUMAB
     Indication: Lung adenocarcinoma stage IV
     Route: 065
     Dates: start: 202201, end: 202204
  4. SELPERCATINIB [Suspect]
     Active Substance: SELPERCATINIB
     Indication: Lung adenocarcinoma stage IV
     Dosage: 160 MILLIGRAM, ONCE A DAY
     Route: 065
     Dates: start: 202204
  5. SELPERCATINIB [Suspect]
     Active Substance: SELPERCATINIB
     Dosage: 160 MILLIGRAM, ONCE A DAY (80 UNK)
     Route: 065
  6. SELPERCATINIB [Suspect]
     Active Substance: SELPERCATINIB
     Dosage: 320 MILLIGRAM, ONCE A DAY (160 UNK)
     Route: 065

REACTIONS (13)
  - Hepatic failure [Fatal]
  - Metastases to peritoneum [Fatal]
  - Malignant neoplasm progression [Fatal]
  - Thrombocytopenia [Unknown]
  - Anaemia [Unknown]
  - Gastrointestinal toxicity [Unknown]
  - Condition aggravated [Unknown]
  - Ascites [Recovering/Resolving]
  - Diarrhoea [Unknown]
  - Oedema peripheral [Unknown]
  - Alanine aminotransferase increased [Recovering/Resolving]
  - Aspartate aminotransferase increased [Recovering/Resolving]
  - Drug ineffective [Unknown]

NARRATIVE: CASE EVENT DATE: 20220101
